FAERS Safety Report 5156813-4 (Version None)
Quarter: 2006Q4

REPORT INFORMATION
  Report Type: 
  Country: None (occurrence: None)
  Receive Date: 20061115
  Receipt Date: 20061103
  Transmission Date: 20070319
  Serious: Yes (Other)
  Sender: FDA-Public Use
  Company Number: 2006135477

PATIENT
  Age: 66 Year
  Sex: Male
  Weight: 108.8633 kg

DRUGS (11)
  1. LIPITOR [Suspect]
     Dosage: (10 MG), ORAL
     Route: 048
     Dates: end: 20060201
  2. CELEBREX [Suspect]
     Indication: OSTEOARTHRITIS
     Dosage: (200 MG), ORAL
     Route: 048
  3. ALTACE [Suspect]
     Dosage: ORAL
     Route: 048
  4. MONOCOR (BISOPROLOL FUMARATE) [Concomitant]
  5. VALSARTAN [Concomitant]
  6. EZETROL (EZETIMIBE) [Concomitant]
  7. WARFARIN SODIUM [Concomitant]
  8. VITAMIN D [Concomitant]
  9. VITAMIN E [Concomitant]
  10. MULTIVITAMIN [Concomitant]
  11. TYLENOL [Concomitant]

REACTIONS (11)
  - ERYTHEMA [None]
  - HERPES ZOSTER [None]
  - INSOMNIA [None]
  - JOINT SWELLING [None]
  - MOBILITY DECREASED [None]
  - PAIN OF SKIN [None]
  - PRURITUS [None]
  - SKIN TIGHTNESS [None]
  - SKIN WARM [None]
  - SPIDER VEIN [None]
  - VARICOSE VEIN [None]
